FAERS Safety Report 9643343 (Version 1)
Quarter: 2013Q4

REPORT INFORMATION
  Report Type: Spontaneous
  Country: IT (occurrence: None)
  Receive Date: 20131022
  Receipt Date: 20131022
  Transmission Date: 20140711
  Serious: Yes (Other)
  Sender: FDA-Public Use
  Company Number: 2013P1020149

PATIENT
  Sex: 0

DRUGS (1)
  1. LITHIUM [Suspect]

REACTIONS (7)
  - Polyuria [None]
  - Polydipsia [None]
  - Renal failure chronic [None]
  - Proteinuria [None]
  - Hypertension [None]
  - Nephropathy [None]
  - Renal cyst [None]
